FAERS Safety Report 6248449-9 (Version None)
Quarter: 2009Q2

REPORT INFORMATION
  Report Type: 
  Country: None (occurrence: None)
  Receive Date: 20090625
  Receipt Date: 20090625
  Transmission Date: 20091009
  Serious: Yes (Other)
  Sender: FDA-Public Use
  Company Number: None

PATIENT
  Age: 54 Year
  Sex: Female
  Weight: 58.0604 kg

DRUGS (2)
  1. GABAPENTIN [Suspect]
     Indication: NERVE INJURY
     Dosage: 1 TABLET 3X DAILY 8-26-08
     Dates: start: 20080826, end: 20081204
  2. GABAPENTIN [Suspect]
     Dosage: 1 TABLET 3X DAILY 10-24-08
     Dates: start: 20080826, end: 20081204

REACTIONS (1)
  - ALOPECIA [None]
